FAERS Safety Report 15965890 (Version 3)
Quarter: 2019Q3

REPORT INFORMATION
  Report Type: Spontaneous
  Country: US (occurrence: US)
  Receive Date: 20190215
  Receipt Date: 20190823
  Transmission Date: 20191004
  Serious: No
  Sender: FDA-Public Use
  Company Number: US-PFIZER INC-2019057843

PATIENT
  Age: 68 Year
  Sex: Female
  Weight: 50.8 kg

DRUGS (4)
  1. LYRICA [Suspect]
     Active Substance: PREGABALIN
     Indication: TRIGEMINAL NEURALGIA
     Dosage: 875 MG, DAILY
  2. LYRICA [Suspect]
     Active Substance: PREGABALIN
     Dosage: 150 MG, 4X/DAY (75MG CAPSULES, 2 CAPSULES 4 TIMES DAILY BY MOUTH)
     Route: 048
     Dates: start: 200412
  3. LYRICA [Suspect]
     Active Substance: PREGABALIN
     Indication: MULTIPLE SCLEROSIS
     Dosage: 375 MG, UNK (75 MG, 5 CAPSULES TOTAL DAILY)
  4. LYRICA [Suspect]
     Active Substance: PREGABALIN
     Dosage: 600 MG, DAILY
     Dates: start: 201804

REACTIONS (5)
  - Intentional product misuse [Unknown]
  - Prescribed overdose [Unknown]
  - Product use issue [Unknown]
  - Weight increased [Unknown]
  - Off label use [Unknown]
